FAERS Safety Report 24789203 (Version 1)
Quarter: 2024Q4

REPORT INFORMATION
  Report Type: Spontaneous
  Country: US (occurrence: US)
  Receive Date: 20241230
  Receipt Date: 20241230
  Transmission Date: 20250114
  Serious: Yes (Hospitalization, Disabling)
  Sender: LUPIN
  Company Number: US-MLMSERVICE-20241212-PI285933-00335-2

PATIENT
  Age: 32 Year
  Sex: Male
  Weight: 83.8 kg

DRUGS (30)
  1. ZIPRASIDONE [Suspect]
     Active Substance: ZIPRASIDONE
     Indication: Schizoaffective disorder bipolar type
     Dosage: 40 MILLIGRAM, BID
     Route: 065
  2. ZIPRASIDONE [Suspect]
     Active Substance: ZIPRASIDONE
     Indication: Attention deficit hyperactivity disorder
  3. ZIPRASIDONE [Suspect]
     Active Substance: ZIPRASIDONE
     Indication: Autism spectrum disorder
  4. QUETIAPINE FUMARATE [Suspect]
     Active Substance: QUETIAPINE FUMARATE
     Indication: Schizoaffective disorder bipolar type
     Dosage: 100 MILLIGRAM, QD,
     Route: 065
  5. QUETIAPINE FUMARATE [Suspect]
     Active Substance: QUETIAPINE FUMARATE
     Indication: Attention deficit hyperactivity disorder
  6. QUETIAPINE FUMARATE [Suspect]
     Active Substance: QUETIAPINE FUMARATE
     Indication: Autism spectrum disorder
  7. DIVALPROEX SODIUM [Suspect]
     Active Substance: DIVALPROEX SODIUM
     Indication: Schizoaffective disorder bipolar type
     Dosage: 1250 MILLIGRAM, QD, NIGHTLY
     Route: 065
  8. DIVALPROEX SODIUM [Suspect]
     Active Substance: DIVALPROEX SODIUM
     Indication: Attention deficit hyperactivity disorder
  9. DIVALPROEX SODIUM [Suspect]
     Active Substance: DIVALPROEX SODIUM
     Indication: Autism spectrum disorder
  10. ESCITALOPRAM [Suspect]
     Active Substance: ESCITALOPRAM OXALATE
     Indication: Schizoaffective disorder bipolar type
     Dosage: 10 MILLIGRAM, QD
     Route: 065
  11. ESCITALOPRAM [Suspect]
     Active Substance: ESCITALOPRAM OXALATE
     Indication: Attention deficit hyperactivity disorder
  12. ESCITALOPRAM [Suspect]
     Active Substance: ESCITALOPRAM OXALATE
     Indication: Autism spectrum disorder
  13. PERPHENAZINE [Suspect]
     Active Substance: PERPHENAZINE
     Indication: Schizoaffective disorder bipolar type
     Dosage: 36 MILLIGRAM, QD, 16 MG DAILY AND 20 MG NIGHTLY
     Route: 065
  14. PERPHENAZINE [Suspect]
     Active Substance: PERPHENAZINE
     Indication: Attention deficit hyperactivity disorder
  15. PERPHENAZINE [Suspect]
     Active Substance: PERPHENAZINE
     Indication: Autism spectrum disorder
  16. BENZTROPINE [Suspect]
     Active Substance: BENZTROPINE
     Indication: Schizoaffective disorder bipolar type
     Dosage: 1 MILLIGRAM
     Route: 065
  17. BENZTROPINE [Suspect]
     Active Substance: BENZTROPINE
     Indication: Attention deficit hyperactivity disorder
  18. BENZTROPINE [Suspect]
     Active Substance: BENZTROPINE
     Indication: Autism spectrum disorder
  19. FLUOXETINE [Concomitant]
     Active Substance: FLUOXETINE HYDROCHLORIDE
     Indication: Schizoaffective disorder bipolar type
     Dosage: 20 MG
     Route: 065
  20. FLUOXETINE [Concomitant]
     Active Substance: FLUOXETINE HYDROCHLORIDE
     Indication: Attention deficit hyperactivity disorder
  21. FLUOXETINE [Concomitant]
     Active Substance: FLUOXETINE HYDROCHLORIDE
     Indication: Autism spectrum disorder
  22. ARIPIPRAZOLE [Concomitant]
     Active Substance: ARIPIPRAZOLE
     Indication: Schizoaffective disorder bipolar type
     Dosage: 5 MG, QD
     Route: 065
  23. ARIPIPRAZOLE [Concomitant]
     Active Substance: ARIPIPRAZOLE
     Indication: Attention deficit hyperactivity disorder
  24. ARIPIPRAZOLE [Concomitant]
     Active Substance: ARIPIPRAZOLE
     Indication: Autism spectrum disorder
  25. OLANZAPINE [Concomitant]
     Active Substance: OLANZAPINE
     Indication: Schizoaffective disorder bipolar type
     Dosage: 40 MG, QD, AT NIGHT, AT ADMISSION DAY 29.
     Route: 065
  26. OLANZAPINE [Concomitant]
     Active Substance: OLANZAPINE
     Indication: Attention deficit hyperactivity disorder
     Dosage: 50 MG, QD, AT NIGHT, AT ADMISSION DAY 55.
     Route: 065
  27. OLANZAPINE [Concomitant]
     Active Substance: OLANZAPINE
     Indication: Autism spectrum disorder
  28. CLOZAPINE [Concomitant]
     Active Substance: CLOZAPINE
     Indication: Schizoaffective disorder bipolar type
     Dosage: 37.5 MG
     Route: 065
  29. CLOZAPINE [Concomitant]
     Active Substance: CLOZAPINE
     Indication: Attention deficit hyperactivity disorder
     Dosage: 162.5 MG, SLOWLY TITRATED
     Route: 065
  30. CLOZAPINE [Concomitant]
     Active Substance: CLOZAPINE
     Indication: Autism spectrum disorder

REACTIONS (2)
  - Extrapyramidal disorder [Recovered/Resolved]
  - Fall [Unknown]
